FAERS Safety Report 16430828 (Version 1)
Quarter: 2019Q2

REPORT INFORMATION
  Report Type: Spontaneous
  Country: US (occurrence: US)
  Receive Date: 20190614
  Receipt Date: 20190614
  Transmission Date: 20190711
  Serious: No
  Sender: FDA-Public Use
  Company Number: US-VERTEX PHARMACEUTICALS-2019-005312

PATIENT
  Sex: Female

DRUGS (23)
  1. CYPROHEPTADINE. [Concomitant]
     Active Substance: CYPROHEPTADINE
  2. ETHAMBUTOL [Concomitant]
     Active Substance: ETHAMBUTOL HYDROCHLORIDE
  3. PANTOPRAZOLE [Concomitant]
     Active Substance: PANTOPRAZOLE
  4. DECARA                             /00318501/ [Concomitant]
  5. GUANFACINE. [Concomitant]
     Active Substance: GUANFACINE
  6. PULMOZYME [Concomitant]
     Active Substance: DORNASE ALFA
  7. SODIUM CHLORIDE. [Concomitant]
     Active Substance: SODIUM CHLORIDE
  8. AMOXICILLIN + CLAV. POTASSIUM [Concomitant]
     Active Substance: AMOXICILLIN\CLAVULANATE POTASSIUM
  9. AZITHROMYCIN ANHYDROUS. [Concomitant]
     Active Substance: AZITHROMYCIN ANHYDROUS
  10. CREON [Concomitant]
     Active Substance: PANCRELIPASE AMYLASE\PANCRELIPASE LIPASE\PANCRELIPASE PROTEASE
  11. MUPIROCIN. [Concomitant]
     Active Substance: MUPIROCIN
     Route: 061
  12. TRIAMCINOLONE [Concomitant]
     Active Substance: TRIAMCINOLONE
  13. ALBUTEROL                          /00139501/ [Concomitant]
     Active Substance: ALBUTEROL
  14. AMIKACIN. [Concomitant]
     Active Substance: AMIKACIN
  15. RIFAMPIN. [Concomitant]
     Active Substance: RIFAMPIN
  16. SYMDEKO [Suspect]
     Active Substance: IVACAFTOR\TEZACAFTOR
     Indication: CYSTIC FIBROSIS
     Dosage: 100MG TEZACAFTOR/150MG IVACAFTOR AM; 150MG IVACAFTOR PM
     Route: 048
     Dates: start: 20180828
  17. ACETYLCYSTEIN [Concomitant]
     Active Substance: ACETYLCYSTEINE
  18. BLISOVI FE 1/20 [Concomitant]
     Active Substance: ETHINYL ESTRADIOL\NORETHINDRONE ACETATE
  19. CLINDAMYCIN. [Concomitant]
     Active Substance: CLINDAMYCIN
     Route: 061
  20. FLUOXETINE [Concomitant]
     Active Substance: FLUOXETINE HYDROCHLORIDE
  21. CHLORHEXIDINE [Concomitant]
     Active Substance: CHLORHEXIDINE
  22. LEVOMEFOLATE CALCIUM [Concomitant]
     Active Substance: LEVOMEFOLATE CALCIUM
  23. SODIUM CHLORIDE. [Concomitant]
     Active Substance: SODIUM CHLORIDE

REACTIONS (3)
  - Pulmonary function test decreased [Unknown]
  - Weight decreased [Unknown]
  - Treatment noncompliance [Unknown]

NARRATIVE: CASE EVENT DATE: 2019
